FAERS Safety Report 13129507 (Version 1)
Quarter: 2017Q1

REPORT INFORMATION
  Report Type: Spontaneous
  Country: US (occurrence: US)
  Receive Date: 20170117
  Receipt Date: 20170117
  Transmission Date: 20170428
  Serious: Yes (Life-Threatening)
  Sender: FDA-Public Use
  Company Number: None

PATIENT
  Age: 72 Year
  Sex: Female

DRUGS (14)
  1. OMEPRAZOLE. [Concomitant]
     Active Substance: OMEPRAZOLE
  2. FERROUS SULFATE. [Concomitant]
     Active Substance: FERROUS SULFATE
  3. FLUTICASONE. [Concomitant]
     Active Substance: FLUTICASONE
  4. DEXAMETHASONE. [Concomitant]
     Active Substance: DEXAMETHASONE
  5. TRAZODONE [Concomitant]
     Active Substance: TRAZODONE HYDROCHLORIDE
  6. CITALOPRAM [Concomitant]
     Active Substance: CITALOPRAM HYDROBROMIDE
  7. LORATADINE. [Concomitant]
     Active Substance: LORATADINE
  8. LENALIDOMIDE [Concomitant]
     Active Substance: LENALIDOMIDE
  9. REVLIMID [Suspect]
     Active Substance: LENALIDOMIDE
     Indication: PLASMA CELL MYELOMA
     Dosage: 5MG DAILY X 21D/28D ORAL
     Route: 048
     Dates: start: 201504
  10. LISINOPRIL. [Concomitant]
     Active Substance: LISINOPRIL
  11. SIMVASTATIN. [Concomitant]
     Active Substance: SIMVASTATIN
  12. ASPIRIN. [Concomitant]
     Active Substance: ASPIRIN
  13. NORTRIPTYLINE [Concomitant]
     Active Substance: NORTRIPTYLINE
  14. HUMULIN NOS [Concomitant]
     Active Substance: INSULIN HUMAN

REACTIONS (4)
  - Deep vein thrombosis [None]
  - Peripheral swelling [None]
  - Pulmonary embolism [None]
  - Vena cava thrombosis [None]

NARRATIVE: CASE EVENT DATE: 20170117
